FAERS Safety Report 5988207-3 (Version None)
Quarter: 2008Q4

REPORT INFORMATION
  Report Type: 
  Country: None (occurrence: None)
  Receive Date: 20081204
  Receipt Date: 20081107
  Transmission Date: 20090506
  Serious: Yes (Other)
  Sender: FDA-Public Use
  Company Number: IMP_03970_2008

PATIENT
  Sex: Female

DRUGS (1)
  1. BUPROPION HCL [Suspect]
     Indication: DRUG USE FOR UNKNOWN INDICATION
     Dosage: 300 MG, FREQUNCY UNKNOWN
     Dates: start: 20080901

REACTIONS (9)
  - AFFECTIVE DISORDER [None]
  - ANGER [None]
  - CRYING [None]
  - ENERGY INCREASED [None]
  - FEELING OF DESPAIR [None]
  - PARANOIA [None]
  - PRODUCT QUALITY ISSUE [None]
  - SLEEP DISORDER [None]
  - SUICIDAL IDEATION [None]
